FAERS Safety Report 23392585 (Version 1)
Quarter: 2024Q1

REPORT INFORMATION
  Report Type: Spontaneous
  Country: GB (occurrence: GB)
  Receive Date: 20240111
  Receipt Date: 20240111
  Transmission Date: 20240410
  Serious: Yes (Other)
  Sender: FDA-Public Use
  Company Number: GB-BAXTER-2024BAX010287

PATIENT
  Weight: 102 kg

DRUGS (3)
  1. CALCIUM CHLORIDE\MAGNESIUM CHLORIDE\POTASSIUM CHLORIDE\SODIUM BICARBON [Suspect]
     Active Substance: CALCIUM CHLORIDE\MAGNESIUM CHLORIDE\POTASSIUM CHLORIDE\SODIUM BICARBONATE\SODIUM CHLORIDE\SODIUM PHO
     Indication: Haemofiltration
     Dosage: UNK
     Route: 065
  2. LACTIC ACID\MAGNESIUM CHLORIDE\SODIUM CARBONATE\SODIUM CHLORIDE [Suspect]
     Active Substance: LACTIC ACID\MAGNESIUM CHLORIDE\SODIUM CARBONATE\SODIUM CHLORIDE
     Indication: Haemofiltration
     Dosage: UNK
     Route: 065
  3. CALCIUM [Suspect]
     Active Substance: CALCIUM
     Dosage: SEPERATELY THROUGH CENTRAL VENOUS CATHETER (CVC) UNSPECIFIED DOSE AND FREQUENCY
     Route: 042

REACTIONS (3)
  - Cardiac arrest [Unknown]
  - Ventricular arrhythmia [Unknown]
  - Calcium ionised decreased [Unknown]
